FAERS Safety Report 4986619-8 (Version None)
Quarter: 2006Q2

REPORT INFORMATION
  Report Type: 
  Country: None (occurrence: None)
  Receive Date: 20060428
  Receipt Date: 20060419
  Transmission Date: 20061013
  Serious: Yes (Death)
  Sender: FDA-Public Use
  Company Number: CZ-BRISTOL-MYERS SQUIBB COMPANY-13353719

PATIENT
  Age: 74 Year
  Sex: Male

DRUGS (1)
  1. AMPHOTERICIN B [Suspect]
     Indication: CRYPTOCOCCOSIS
     Dates: start: 20041207, end: 20041219

REACTIONS (1)
  - THROMBOCYTOPENIA [None]
